FAERS Safety Report 12579378 (Version 1)
Quarter: 2016Q3

REPORT INFORMATION
  Report Type: Spontaneous
  Country: US (occurrence: US)
  Receive Date: 20160721
  Receipt Date: 20160721
  Transmission Date: 20161109
  Serious: No
  Sender: FDA-Public Use
  Company Number: US-GLAXOSMITHKLINE-US2016098060

PATIENT
  Sex: Male

DRUGS (1)
  1. LAMICTAL XR [Suspect]
     Active Substance: LAMOTRIGINE
     Indication: FUNGAL SKIN INFECTION

REACTIONS (4)
  - Product name confusion [Unknown]
  - Wrong drug administered [Unknown]
  - Feeling abnormal [Not Recovered/Not Resolved]
  - Drug dispensing error [Unknown]
